FAERS Safety Report 22279120 (Version 1)
Quarter: 2023Q2

REPORT INFORMATION
  Report Type: Spontaneous
  Country: IT (occurrence: IT)
  Receive Date: 20230503
  Receipt Date: 20230503
  Transmission Date: 20230721
  Serious: Yes (Other)
  Sender: FDA-Public Use
  Company Number: None

PATIENT
  Age: 44 Year
  Sex: Male

DRUGS (1)
  1. RINVOQ [Suspect]
     Active Substance: UPADACITINIB
     Indication: Ankylosing spondylitis
     Dosage: 15MG/DAY, CUMULATIVE DOSE- 5115 MG
     Route: 048
     Dates: start: 20220303, end: 20230406

REACTIONS (4)
  - Joint stiffness [Recovered/Resolved]
  - Drug ineffective [Recovered/Resolved]
  - Middle insomnia [Recovered/Resolved]
  - Arthralgia [Recovered/Resolved]

NARRATIVE: CASE EVENT DATE: 20230206
